FAERS Safety Report 26076243 (Version 1)
Quarter: 2025Q4

REPORT INFORMATION
  Report Type: Spontaneous
  Country: GB (occurrence: None)
  Receive Date: 20251121
  Receipt Date: 20251121
  Transmission Date: 20260118
  Serious: No
  Sender: Harrow Health
  Company Number: GB-HARROW-HAR-2025-GB-00385

PATIENT
  Sex: Male

DRUGS (1)
  1. VERKAZIA [Suspect]
     Active Substance: CYCLOSPORINE
     Route: 065

REACTIONS (1)
  - Swelling face [Unknown]
